FAERS Safety Report 17400113 (Version 2)
Quarter: 2020Q1

REPORT INFORMATION
  Report Type: Spontaneous
  Country: CN (occurrence: CN)
  Receive Date: 20200211
  Receipt Date: 20200226
  Transmission Date: 20200409
  Serious: Yes (Death, Other)
  Sender: FDA-Public Use
  Company Number: CN-ACCORD-172099

PATIENT
  Age: 55 Year
  Sex: Female

DRUGS (4)
  1. FOLINIC ACID [Suspect]
     Active Substance: LEUCOVORIN
     Indication: RECTAL ADENOCARCINOMA
     Dosage: DAY 1
     Route: 042
     Dates: start: 2016
  2. FLUOROURACIL. [Suspect]
     Active Substance: FLUOROURACIL
     Indication: RECTAL ADENOCARCINOMA
     Dosage: ON DAY 1, THEN 1200 MG/M2/D X 2 DAYS IV CONTINUOUS INFUSION
     Route: 040
     Dates: start: 2016
  3. BEVACIZUMAB. [Suspect]
     Active Substance: BEVACIZUMAB
     Indication: RECTAL ADENOCARCINOMA
     Dosage: DAY 1, EVERY 2 WEEKS
     Route: 042
     Dates: start: 2016
  4. IRINOTECAN [Suspect]
     Active Substance: IRINOTECAN
     Indication: RECTAL ADENOCARCINOMA
     Dosage: DAY 1
     Route: 042
     Dates: start: 2016

REACTIONS (1)
  - Hepatic function abnormal [Recovering/Resolving]
